FAERS Safety Report 9054841 (Version 3)
Quarter: 2013Q2

REPORT INFORMATION
  Report Type: Report from Study
  Country: CA (occurrence: CA)
  Receive Date: 20130208
  Receipt Date: 20130507
  Transmission Date: 20140414
  Serious: Yes (Hospitalization)
  Sender: FDA-Public Use
  Company Number: CA-JNJFOC-20121109869

PATIENT
  Age: 36 Year
  Sex: Female
  Weight: 64.5 kg

DRUGS (8)
  1. REMICADE [Suspect]
     Indication: CROHN^S DISEASE
     Route: 042
  2. REMICADE [Suspect]
     Indication: CROHN^S DISEASE
     Route: 042
     Dates: start: 20130301
  3. REMICADE [Suspect]
     Indication: CROHN^S DISEASE
     Route: 042
     Dates: start: 20130107
  4. REMICADE [Suspect]
     Indication: CROHN^S DISEASE
     Route: 042
     Dates: start: 20110214
  5. IMURAN [Concomitant]
     Route: 065
  6. FLAGYL [Concomitant]
     Dosage: MG
     Route: 048
  7. PENICILLIN [Concomitant]
     Dosage: FOR 7DAYS
     Route: 065
  8. SOLU CORTEF [Concomitant]
     Indication: PREMEDICATION
     Route: 042

REACTIONS (3)
  - Exposure during pregnancy [Not Recovered/Not Resolved]
  - Gestational diabetes [Recovering/Resolving]
  - Cellulitis [Recovered/Resolved]
